FAERS Safety Report 14985807 (Version 1)
Quarter: 2018Q2

REPORT INFORMATION
  Report Type: Spontaneous
  Country: GB (occurrence: US)
  Receive Date: 20180516
  Receipt Date: 20180516
  Transmission Date: 20180711
  Serious: Yes (Hospitalization)
  Sender: FDA-Public Use
  Company Number: None

PATIENT
  Age: 63 Year
  Sex: Female
  Weight: 60.8 kg

DRUGS (1)
  1. FEMARA [Suspect]
     Active Substance: LETROZOLE
     Dates: end: 20180314

REACTIONS (5)
  - Oedema peripheral [None]
  - Enterococcal infection [None]
  - Anaemia [None]
  - Hydronephrosis [None]
  - Acute kidney injury [None]

NARRATIVE: CASE EVENT DATE: 20180426
